FAERS Safety Report 11583556 (Version 1)
Quarter: 2015Q3

REPORT INFORMATION
  Report Type: Spontaneous
  Country: US (occurrence: None)
  Receive Date: 20150930
  Receipt Date: 20150930
  Transmission Date: 20151125
  Serious: Yes (Hospitalization)
  Sender: FDA-Public Use
  Company Number: None

PATIENT
  Age: 74 Year
  Sex: Female
  Weight: 70.08 kg

DRUGS (23)
  1. OXYBUTYNIN CHLORIDE (OXYBUTYNIN CHLORIDE) [Concomitant]
  2. SPIRONOLACTONE (SPIRONOLACTONE) [Concomitant]
     Active Substance: SPIRONOLACTONE
  3. LOTEMAX (LOTEPREDNOL ETABONATE) [Concomitant]
  4. POTASSIUM CHLORIDE  (POOTASSIUM CHLORIDE) [Concomitant]
  5. MICARDIS [Concomitant]
     Active Substance: TELMISARTAN
  6. ASPIRIN (ASPIRIN) [Concomitant]
     Active Substance: ASPIRIN
  7. DOMPERIDONE [Concomitant]
     Active Substance: DOMPERIDONE
  8. IPRATROPIUM BROMIDE SOLN (IPRATROPIUM BROMIDE SOLN) [Concomitant]
  9. FUROSEMIDE (FUROSEMIDE) [Concomitant]
     Active Substance: FUROSEMIDE
  10. DOCUSATE SODIUIM (DOCUSATE SODIUM) [Concomitant]
  11. DESLORATADINE (DESLORATADINE) [Concomitant]
     Active Substance: DESLORATADINE
  12. ATORVASTATIN CALCIUM (ATORVASTATIN CALCIUM) [Concomitant]
     Active Substance: ATORVASTATIN CALCIUM
  13. PREMARIN TABS (ESTROGENS CONJUGATED TABS) [Concomitant]
  14. RESTASIS (CYCLOSPORINE) [Concomitant]
  15. AZELASTINE (AZELASTINE HCL SOLN) [Concomitant]
  16. DOMPERIDONE [Suspect]
     Active Substance: DOMPERIDONE
     Indication: IMPAIRED GASTRIC EMPTYING
     Route: 048
     Dates: start: 201208
  17. NEXIUM [Concomitant]
     Active Substance: ESOMEPRAZOLE MAGNESIUM
  18. MIRALAX (POLUETHYLENE GLYCOL) [Concomitant]
  19. WELLBUTRIN  (BUPROPION HCL) [Concomitant]
  20. ADCIRCA [Concomitant]
     Active Substance: TADALAFIL
  21. OPSUMIT [Concomitant]
     Active Substance: MACITENTAN
  22. PROAIR HFA [Concomitant]
     Active Substance: ALBUTEROL SULFATE
  23. CLOPIDOGREL BISULFATE (CLOPIDOGREL BISULFATE) [Concomitant]

REACTIONS (1)
  - Dyspnoea [None]

NARRATIVE: CASE EVENT DATE: 20150908
